FAERS Safety Report 5095614-2 (Version None)
Quarter: 2006Q3

REPORT INFORMATION
  Report Type: 
  Country: None (occurrence: None)
  Receive Date: 20060901
  Receipt Date: 20060825
  Transmission Date: 20061208
  Serious: Yes (Hospitalization)
  Sender: FDA-Public Use
  Company Number: JP-MERCK-0608USA06743

PATIENT
  Age: 73 Year
  Sex: Male

DRUGS (6)
  1. PEPCID RPD [Suspect]
     Indication: GASTRITIS
     Route: 048
     Dates: start: 20040413, end: 20060615
  2. LIPITOR [Suspect]
     Indication: HYPERLIPIDAEMIA
     Route: 048
     Dates: start: 20041125, end: 20060615
  3. METFORMIN HYDROCHLORIDE [Suspect]
     Indication: DIABETES MELLITUS
     Route: 048
     Dates: start: 20041124, end: 20060616
  4. DIOVAN [Suspect]
     Indication: HYPERTENSION
     Route: 048
     Dates: start: 20040622, end: 20060615
  5. KETAS [Suspect]
     Indication: CEREBRAL INFARCTION
     Route: 048
     Dates: start: 20040615, end: 20060615
  6. BUFFERIN [Suspect]
     Indication: CEREBRAL INFARCTION
     Route: 048
     Dates: start: 20040413, end: 20060615

REACTIONS (1)
  - STEVENS-JOHNSON SYNDROME [None]
